FAERS Safety Report 8421513-1 (Version None)
Quarter: 2012Q2

REPORT INFORMATION
  Report Type: 
  Country: None (occurrence: None)
  Receive Date: 20120608
  Receipt Date: 20120601
  Transmission Date: 20120825
  Serious: Yes (Other)
  Sender: FDA-Public Use
  Company Number: JP-JNJFOC-20120406209

PATIENT
  Age: 64 Year
  Sex: Male

DRUGS (9)
  1. FENTANYL-100 [Suspect]
     Indication: CANCER PAIN
     Dosage: APPLIED 5 PATCHES OF FENTANYL OF UNKNOWN DOSE
     Route: 062
  2. LOXONIN [Concomitant]
     Indication: PAIN
     Route: 048
  3. MORPHINE [Concomitant]
     Indication: PRODUCT USED FOR UNKNOWN INDICATION
     Dosage: AS NEEDED
     Route: 048
  4. FENTANYL-100 [Suspect]
     Dosage: TWO 75 UG/HR PATCHES
     Route: 062
  5. FENTANYL-100 [Suspect]
     Route: 062
     Dates: start: 20120424
  6. FENTANYL-100 [Suspect]
     Dosage: REPORTED AS 2.5 UG/HR
     Route: 062
  7. ZOLPIDEM [Concomitant]
     Indication: INSOMNIA
     Route: 048
  8. LENDEM [Concomitant]
     Indication: INSOMNIA
     Route: 048
  9. LASIX [Concomitant]
     Indication: OEDEMA
     Route: 048

REACTIONS (7)
  - DELIRIUM [None]
  - DRUG PRESCRIBING ERROR [None]
  - TREATMENT NONCOMPLIANCE [None]
  - HEPATIC NEOPLASM MALIGNANT [None]
  - INCORRECT DRUG ADMINISTRATION DURATION [None]
  - PRODUCT QUALITY ISSUE [None]
  - OVERDOSE [None]
